FAERS Safety Report 18498803 (Version 1)
Quarter: 2020Q4

REPORT INFORMATION
  Report Type: Report from Study
  Country: US (occurrence: US)
  Receive Date: 20201113
  Receipt Date: 20201113
  Transmission Date: 20210114
  Serious: Yes (Death)
  Sender: FDA-Public Use
  Company Number: US-BAUSCH-BL-2019-022662

PATIENT
  Age: 80 Year
  Sex: Male
  Weight: 105.78 kg

DRUGS (1)
  1. XIFAXAN [Suspect]
     Active Substance: RIFAXIMIN
     Indication: PRODUCT USED FOR UNKNOWN INDICATION
     Route: 065
     Dates: end: 201907

REACTIONS (3)
  - Product supply issue [Unknown]
  - Therapy interrupted [Unknown]
  - Death [Fatal]

NARRATIVE: CASE EVENT DATE: 2019
